FAERS Safety Report 7029463-2 (Version None)
Quarter: 2010Q4

REPORT INFORMATION
  Report Type: 
  Country: None (occurrence: None)
  Receive Date: 20101005
  Receipt Date: 20100927
  Transmission Date: 20110411
  Serious: Yes (Hospitalization)
  Sender: FDA-Public Use
  Company Number: FR-AMGEN-US411276

PATIENT
  Sex: Female

DRUGS (4)
  1. ENBREL [Suspect]
     Indication: RHEUMATOID ARTHRITIS
     Route: 058
     Dates: start: 20100315
  2. CORTANCYL [Concomitant]
  3. FLECAINIDE ACETATE [Concomitant]
  4. ARAVA [Concomitant]

REACTIONS (16)
  - CHEST PAIN [None]
  - CONDITION AGGRAVATED [None]
  - DYSGEUSIA [None]
  - DYSPNOEA [None]
  - FATIGUE [None]
  - FEELING HOT [None]
  - HEADACHE [None]
  - HYPERTENSION [None]
  - HYPOAESTHESIA [None]
  - IMPAIRED HEALING [None]
  - LIMB INJURY [None]
  - MALAISE [None]
  - PARAESTHESIA [None]
  - SYNCOPE [None]
  - VENOUS OPERATION [None]
  - WHITE BLOOD CELL COUNT DECREASED [None]
